FAERS Safety Report 6554751-3 (Version None)
Quarter: 2010Q1

REPORT INFORMATION
  Report Type: 
  Country: None (occurrence: None)
  Receive Date: 20100127
  Receipt Date: 20100126
  Transmission Date: 20100710
  Serious: Yes (Death, Hospitalization)
  Sender: FDA-Public Use
  Company Number: BR-B.I. PHARMACEUTICALS,INC./RIDGEFIELD-2010-BR-00091BR

PATIENT
  Age: 62 Year
  Sex: Male

DRUGS (3)
  1. SPIRIVA [Suspect]
     Indication: EMPHYSEMA
     Dosage: NR
  2. FORASEQ [Concomitant]
     Dosage: NR
  3. NON-SPECIFIED MEDICATIONS [Concomitant]
     Dosage: NR

REACTIONS (1)
  - LUNG INFECTION [None]
